FAERS Safety Report 4888576-1 (Version None)
Quarter: 2005Q4

REPORT INFORMATION
  Report Type: 
  Country: None (occurrence: None)
  Receive Date: 20051215
  Receipt Date: 20050121
  Transmission Date: 20060501
  Serious: Yes (Other)
  Sender: FDA-Public Use
  Company Number: 2005024258

PATIENT
  Sex: Male

DRUGS (1)
  1. BEXTRA [Suspect]

REACTIONS (4)
  - ANGIOPATHY [None]
  - CARDIAC DISORDER [None]
  - MYOCARDIAL INFARCTION [None]
  - THROMBOSIS [None]
